FAERS Safety Report 25851476 (Version 1)
Quarter: 2025Q3

REPORT INFORMATION
  Report Type: Spontaneous
  Country: GB (occurrence: GB)
  Receive Date: 20250926
  Receipt Date: 20250926
  Transmission Date: 20251020
  Serious: Yes (Hospitalization)
  Sender: MYLAN
  Company Number: GB-MYLANLABS-2025M1081600

PATIENT
  Age: 8 Decade
  Sex: Male

DRUGS (13)
  1. GEMCITABINE [Suspect]
     Active Substance: GEMCITABINE
     Indication: Adenocarcinoma pancreas
  2. PYRIDOSTIGMINE [Suspect]
     Active Substance: PYRIDOSTIGMINE
     Indication: Orthostatic hypotension
     Dosage: 10 MILLIGRAM, TID
  3. PYRIDOSTIGMINE [Suspect]
     Active Substance: PYRIDOSTIGMINE
  4. PYRIDOSTIGMINE [Suspect]
     Active Substance: PYRIDOSTIGMINE
  5. TAMSULOSIN [Suspect]
     Active Substance: TAMSULOSIN
     Indication: Product used for unknown indication
  6. FLUDROCORTISONE [Suspect]
     Active Substance: FLUDROCORTISONE
     Indication: Orthostatic hypotension
  7. FLUDROCORTISONE [Suspect]
     Active Substance: FLUDROCORTISONE
  8. ABRAXANE [Suspect]
     Active Substance: PACLITAXEL
     Indication: Adenocarcinoma pancreas
  9. AMITRIPTYLINE [Suspect]
     Active Substance: AMITRIPTYLINE
     Indication: Product used for unknown indication
  10. OXYCODONE [Concomitant]
     Active Substance: OXYCODONE
     Indication: Abdominal pain
  11. OXYCODONE [Concomitant]
     Active Substance: OXYCODONE
  12. METOCLOPRAMIDE [Concomitant]
     Active Substance: METOCLOPRAMIDE
     Indication: Abdominal pain
  13. METOCLOPRAMIDE [Concomitant]
     Active Substance: METOCLOPRAMIDE

REACTIONS (5)
  - Orthostatic hypotension [Not Recovered/Not Resolved]
  - Fall [Unknown]
  - Salivary hypersecretion [Unknown]
  - Drug ineffective for unapproved indication [Unknown]
  - Off label use [Unknown]
